FAERS Safety Report 9500631 (Version 2)
Quarter: 2013Q3

REPORT INFORMATION
  Report Type: Spontaneous
  Country: AU (occurrence: AU)
  Receive Date: 20130905
  Receipt Date: 20130913
  Transmission Date: 20140515
  Serious: Yes (Other)
  Sender: FDA-Public Use
  Company Number: AU-PFIZER INC-2013254685

PATIENT
  Sex: Male

DRUGS (2)
  1. EFEXOR XR [Suspect]
     Dosage: UNK
     Dates: start: 2004
  2. EFEXOR XR [Suspect]
     Dosage: 150 MG, 2X/DAY
     Dates: start: 2008, end: 2011

REACTIONS (4)
  - Prescribed overdose [Unknown]
  - Hepatic failure [Unknown]
  - Haemochromatosis [Unknown]
  - Feeling abnormal [Unknown]
